FAERS Safety Report 21204388 (Version 2)
Quarter: 2022Q3

REPORT INFORMATION
  Report Type: Spontaneous
  Country: US (occurrence: US)
  Receive Date: 20220812
  Receipt Date: 20220812
  Transmission Date: 20221027
  Serious: Yes (Other)
  Sender: FDA-Public Use
  Company Number: CA-SPECGX-T202201712

PATIENT
  Age: 47 Year
  Sex: Female

DRUGS (7)
  1. METHADONE [Interacting]
     Active Substance: METHADONE HYDROCHLORIDE
     Indication: Product used for unknown indication
     Dosage: 90 MILLIGRAM, QD
     Route: 065
  2. METHADONE [Interacting]
     Active Substance: METHADONE HYDROCHLORIDE
     Dosage: 230 MILLIGRAM, QD
     Route: 065
  3. METHADONE [Interacting]
     Active Substance: METHADONE HYDROCHLORIDE
     Dosage: 210 MILLIGRAM, QD
     Route: 065
  4. EFAVIRENZ [Interacting]
     Active Substance: EFAVIRENZ
     Indication: Antiretroviral therapy
     Dosage: 600 MILLIGRAM, EVERY NIGHT
     Route: 065
  5. EMTRICITABINE\TENOFOVIR [Interacting]
     Active Substance: EMTRICITABINE\TENOFOVIR
     Indication: Antiretroviral therapy
     Dosage: 200-300 MG/DAY
     Route: 065
  6. VORICONAZOLE [Interacting]
     Active Substance: VORICONAZOLE
     Indication: Bronchopulmonary aspergillosis
     Dosage: 200 MILLIGRAM, QD
     Route: 065
  7. RALTEGRAVIR [Interacting]
     Active Substance: RALTEGRAVIR
     Indication: Antiretroviral therapy
     Dosage: 400 MILLIGRAM, BID
     Route: 065

REACTIONS (5)
  - Pneumothorax spontaneous [Unknown]
  - Electrocardiogram QT prolonged [Unknown]
  - Torsade de pointes [Unknown]
  - Ventricular tachycardia [Unknown]
  - Drug interaction [Unknown]
